FAERS Safety Report 18101849 (Version 1)
Quarter: 2020Q3

REPORT INFORMATION
  Report Type: Spontaneous
  Country: US (occurrence: US)
  Receive Date: 20200802
  Receipt Date: 20200802
  Transmission Date: 20201103
  Serious: Yes (Death, Other)
  Sender: FDA-Public Use
  Company Number: US-BEH-2020120418

PATIENT

DRUGS (3)
  1. PHENYTOIN. [Suspect]
     Active Substance: PHENYTOIN
     Route: 064
  2. HUMAN IMMUNOGLOBULIN (INN) [Suspect]
     Active Substance: HUMAN IMMUNOGLOBULIN G
     Indication: PRODUCT USED FOR UNKNOWN INDICATION
     Dosage: UNK
     Route: 064
  3. DIVALPROEX [Suspect]
     Active Substance: DIVALPROEX SODIUM
     Route: 064

REACTIONS (8)
  - Sepsis [Fatal]
  - Dermatitis exfoliative generalised [Not Recovered/Not Resolved]
  - Skin oedema [Not Recovered/Not Resolved]
  - Foetal exposure during pregnancy [Fatal]
  - Toxic epidermal necrolysis [Not Recovered/Not Resolved]
  - Blister [Not Recovered/Not Resolved]
  - Foetal exposure during pregnancy [Not Recovered/Not Resolved]
  - Purpura [Not Recovered/Not Resolved]
